FAERS Safety Report 8171594-8 (Version None)
Quarter: 2012Q1

REPORT INFORMATION
  Report Type: 
  Country: None (occurrence: None)
  Receive Date: 20120104
  Receipt Date: 20111111
  Transmission Date: 20120608
  Serious: No
  Sender: FDA-Public Use
  Company Number: 2011HGS-002790

PATIENT
  Age: 47 Year
  Sex: Female
  Weight: 122.4712 kg

DRUGS (11)
  1. PREDNISONE TAB [Concomitant]
  2. BENLYSTA [Suspect]
     Indication: SYSTEMIC LUPUS ERYTHEMATOSUS
     Dosage: 10 MG/KG, 1 IN 28 D, INTRAVENOUS  DRIP
     Route: 041
     Dates: start: 20110930
  3. EPIPEN [Concomitant]
  4. PLAQUENIL [Concomitant]
  5. FOLIC ACID [Concomitant]
  6. CELLCEPT [Concomitant]
  7. LIBRAX (NIRVAXAL) (CHLORDIAZEPOXIDE, CLIDINIUM BROMIDE) [Concomitant]
  8. NEXIUM [Concomitant]
  9. MAGNESIUM (MAGNESIUM) [Concomitant]
  10. CALCIUM CARBONATE [Concomitant]
  11. CALCITROL (CALCITROL) (ERGOCALCIFEROL, RETINOL, CALCIUM CARBONATE) [Concomitant]

REACTIONS (2)
  - PAIN [None]
  - SYSTEMIC LUPUS ERYTHEMATOSUS [None]
